FAERS Safety Report 21993576 (Version 1)
Quarter: 2023Q1

REPORT INFORMATION
  Report Type: Spontaneous
  Country: US (occurrence: US)
  Receive Date: 20230215
  Receipt Date: 20230215
  Transmission Date: 20230418
  Serious: Yes (Death, Life-Threatening)
  Sender: FDA-Public Use
  Company Number: US-drreddys-LIT/USA/23/0161164

PATIENT
  Age: 38 Year
  Sex: Male

DRUGS (3)
  1. LEVOFLOXACIN [Suspect]
     Active Substance: LEVOFLOXACIN
     Indication: Tularaemia
  2. CEFTAROLINE FOSAMIL [Suspect]
     Active Substance: CEFTAROLINE FOSAMIL
     Indication: Tularaemia
  3. AMPHOTERICIN B [Suspect]
     Active Substance: AMPHOTERICIN B
     Indication: Tularaemia

REACTIONS (7)
  - Cardiac arrest [Fatal]
  - Hilar lymphadenopathy [Fatal]
  - Pulmonary alveolar haemorrhage [Fatal]
  - Duodenal ulcer haemorrhage [Fatal]
  - Tularaemia [Fatal]
  - Drug ineffective [Unknown]
  - Product use in unapproved indication [Unknown]
